FAERS Safety Report 10674106 (Version 1)
Quarter: 2014Q4

REPORT INFORMATION
  Report Type: Spontaneous
  Country: DE (occurrence: DE)
  Receive Date: 20141224
  Receipt Date: 20141224
  Transmission Date: 20150529
  Serious: Yes (Other)
  Sender: FDA-Public Use
  Company Number: DE-PFIZER INC-2014350280

PATIENT
  Sex: Female
  Weight: 2.13 kg

DRUGS (4)
  1. VENLAFAXINE HCL [Suspect]
     Active Substance: VENLAFAXINE HYDROCHLORIDE
     Indication: DEPRESSION
     Dosage: 1 DF, DAILY, 0. - 37.4. GESTATIONAL WEEK
     Route: 064
     Dates: start: 20140125, end: 20141015
  2. BISOPROLOL [Suspect]
     Active Substance: BISOPROLOL
     Indication: HYPERTENSION
     Dosage: 6 MG, DAILY (3.5 MG IN MORNING, 2.5 MG AT NIGHT) 0. - 37.4. GESTATIONAL WEEK
     Route: 064
     Dates: start: 20140125, end: 20141015
  3. VENLAFAXINE HCL [Suspect]
     Active Substance: VENLAFAXINE HYDROCHLORIDE
     Indication: ANXIETY DISORDER
  4. L-THYROXIN [Concomitant]
     Active Substance: LEVOTHYROXINE SODIUM
     Indication: HYPOTHYROIDISM
     Dosage: 87.5 ?G, DAILY ( 0. - 37.4. GESTATIONAL WEEK)
     Route: 064
     Dates: start: 20140125, end: 20141015

REACTIONS (3)
  - Maternal exposure during pregnancy [Recovered/Resolved]
  - Small for dates baby [Recovered/Resolved]
  - Intracranial venous sinus thrombosis [Recovered/Resolved]

NARRATIVE: CASE EVENT DATE: 20141015
